FAERS Safety Report 6384245-X (Version None)
Quarter: 2009Q4

REPORT INFORMATION
  Report Type: 
  Country: None (occurrence: None)
  Receive Date: 20091001
  Receipt Date: 20090916
  Transmission Date: 20100525
  Serious: Yes (Hospitalization)
  Sender: FDA-Public Use
  Company Number: US-PFIZER INC-2009275114

PATIENT
  Age: 77 Year
  Sex: Female

DRUGS (5)
  1. DETROL LA [Suspect]
     Dosage: UNK
     Dates: end: 20090701
  2. NAMENDA [Suspect]
     Indication: DEMENTIA ALZHEIMER'S TYPE
     Dosage: 15 MG, 1X/DAY
     Route: 048
  3. EXELON [Concomitant]
     Dosage: UNK
  4. ACTONEL [Concomitant]
     Dosage: UNK
  5. SYNTHROID [Concomitant]
     Dosage: UNK

REACTIONS (3)
  - ASTHENIA [None]
  - DIZZINESS [None]
  - URINARY TRACT INFECTION [None]
